FAERS Safety Report 7182967-4 (Version None)
Quarter: 2010Q4

REPORT INFORMATION
  Report Type: 
  Country: None (occurrence: None)
  Receive Date: 20101209
  Receipt Date: 20101123
  Transmission Date: 20110411
  Serious: Yes (Hospitalization, Other)
  Sender: FDA-Public Use
  Company Number: 2010AP002515

PATIENT
  Age: 70 Year
  Sex: Female

DRUGS (1)
  1. ALENDRONATE SODIUM [Suspect]
     Dosage: TAB;PO
     Route: 048

REACTIONS (2)
  - FEMUR FRACTURE [None]
  - PUBIS FRACTURE [None]
